FAERS Safety Report 12769001 (Version 1)
Quarter: 2016Q3

REPORT INFORMATION
  Report Type: Spontaneous
  Country: US (occurrence: US)
  Receive Date: 20160921
  Receipt Date: 20160921
  Transmission Date: 20161109
  Serious: No
  Sender: FDA-Public Use
  Company Number: US-JAZZ-2016-US-010197

PATIENT
  Sex: Female

DRUGS (35)
  1. XYREM [Suspect]
     Active Substance: SODIUM OXYBATE
     Indication: HYPERSOMNIA
     Dosage: 3 G, BID
     Route: 048
     Dates: start: 201007, end: 201008
  2. ZOFRAN [Concomitant]
     Active Substance: ONDANSETRON HYDROCHLORIDE
  3. HYDROCODONE/ACETAMINOPHEN [Concomitant]
     Active Substance: ACETAMINOPHEN\HYDROCODONE
  4. VITAMIN B COMPLEX [Concomitant]
     Active Substance: CYANOCOBALAMIN\DEXPANTHENOL\NIACINAMIDE\PYRIDOXINE HYDROCHLORIDE\RIBOFLAVIN 5^-PHOSPHATE SODIUM\THIAMINE HYDROCHLORIDE\VITAMIN B COMPLEX
  5. XANAX [Concomitant]
     Active Substance: ALPRAZOLAM
  6. LIBRAX [Concomitant]
     Active Substance: CHLORDIAZEPOXIDE HYDROCHLORIDE\CLIDINIUM BROMIDE
  7. NORCO [Concomitant]
     Active Substance: ACETAMINOPHEN\HYDROCODONE BITARTRATE
  8. SOMA [Concomitant]
     Active Substance: CARISOPRODOL
  9. ALEVE [Concomitant]
     Active Substance: NAPROXEN SODIUM
  10. VITAMIN D [Concomitant]
     Active Substance: CHOLECALCIFEROL
  11. RIZATRIPTAN. [Concomitant]
     Active Substance: RIZATRIPTAN
  12. BUDESONIDE. [Concomitant]
     Active Substance: BUDESONIDE
  13. ORACEA [Concomitant]
     Active Substance: DOXYCYCLINE
  14. PROBIOTIC [Concomitant]
     Active Substance: PROBIOTICS NOS
  15. XYREM [Suspect]
     Active Substance: SODIUM OXYBATE
     Dosage: 3.75 G, BID
     Route: 048
     Dates: start: 201504
  16. ABILIFY [Concomitant]
     Active Substance: ARIPIPRAZOLE
  17. ALLEGRA [Concomitant]
     Active Substance: FEXOFENADINE HYDROCHLORIDE
  18. ZYRTEC [Concomitant]
     Active Substance: CETIRIZINE HYDROCHLORIDE
  19. IMITREX [Concomitant]
     Active Substance: SUMATRIPTAN SUCCINATE
  20. SINGULAIR [Concomitant]
     Active Substance: MONTELUKAST SODIUM
  21. SPIRONOLACTONE. [Concomitant]
     Active Substance: SPIRONOLACTONE
  22. CESAMET [Concomitant]
     Active Substance: NABILONE
  23. ZANTAC [Concomitant]
     Active Substance: RANITIDINE HYDROCHLORIDE
  24. LYRICA [Concomitant]
     Active Substance: PREGABALIN
  25. XYREM [Suspect]
     Active Substance: SODIUM OXYBATE
     Dosage: DOSE ADJUSTMENTS
     Route: 048
  26. NEXIUM [Concomitant]
     Active Substance: ESOMEPRAZOLE MAGNESIUM
  27. NALTREXONE [Concomitant]
     Active Substance: NALTREXONE
  28. SPRINTEC [Concomitant]
     Active Substance: ETHINYL ESTRADIOL\NORGESTIMATE
  29. PATANASE [Concomitant]
     Active Substance: OLOPATADINE HYDROCHLORIDE
  30. LEXAPRO [Concomitant]
     Active Substance: ESCITALOPRAM OXALATE
  31. XANAX XR [Concomitant]
     Active Substance: ALPRAZOLAM
  32. AMBIEN [Concomitant]
     Active Substance: ZOLPIDEM TARTRATE
  33. GAVISCON ES [Concomitant]
  34. NEXIUM [Concomitant]
     Active Substance: ESOMEPRAZOLE MAGNESIUM
  35. BUSPAR [Concomitant]
     Active Substance: BUSPIRONE HYDROCHLORIDE

REACTIONS (1)
  - Unevaluable event [Not Recovered/Not Resolved]
